FAERS Safety Report 5336796-4 (Version None)
Quarter: 2007Q2

REPORT INFORMATION
  Report Type: 
  Country: None (occurrence: None)
  Receive Date: 20070529
  Receipt Date: 20070518
  Transmission Date: 20071010
  Serious: Yes (Hospitalization)
  Sender: FDA-Public Use
  Company Number: PHHO2007AU06877

PATIENT
  Age: 74 Year
  Sex: Female
  Weight: 81.9 kg

DRUGS (5)
  1. ZOLEDRONIC ACID [Suspect]
     Indication: OSTEOPOROSIS POSTMENOPAUSAL
     Dosage: DOUBLE-BLIND
     Route: 042
     Dates: start: 20060413
  2. CELEBREX [Concomitant]
     Indication: PAIN IN EXTREMITY
     Dosage: 200 MG, QD
     Route: 048
     Dates: start: 20040101
  3. IMIGRAN [Concomitant]
     Indication: MIGRAINE
     Dosage: 50 MG, PRN
     Route: 048
  4. CALCIUM CHLORIDE [Concomitant]
     Indication: OSTEOPOROSIS POSTMENOPAUSAL
  5. VITAMIN D [Concomitant]
     Indication: OSTEOPOROSIS POSTMENOPAUSAL

REACTIONS (6)
  - DYSARTHRIA [None]
  - FACIAL PALSY [None]
  - FALL [None]
  - HUMERUS FRACTURE [None]
  - PAIN IN EXTREMITY [None]
  - TRANSIENT ISCHAEMIC ATTACK [None]
